FAERS Safety Report 5104788-6 (Version None)
Quarter: 2006Q3

REPORT INFORMATION
  Report Type: 
  Country: None (occurrence: None)
  Receive Date: 20060911
  Receipt Date: 20060905
  Transmission Date: 20061208
  Serious: Yes (Hospitalization)
  Sender: FDA-Public Use
  Company Number: SU-2006-005377

PATIENT
  Age: 88 Year
  Sex: Male
  Weight: 86.1834 kg

DRUGS (3)
  1. BENICAR [Suspect]
     Indication: HYPERTENSION
     Dosage: 20 MG QD PO
     Route: 048
     Dates: start: 20060805
  2. NORVASC [Concomitant]
  3. PRINIVIL [Concomitant]

REACTIONS (2)
  - BLOOD SODIUM DECREASED [None]
  - NAUSEA [None]
